FAERS Safety Report 15384751 (Version 1)
Quarter: 2018Q3

REPORT INFORMATION
  Report Type: Spontaneous
  Country: US (occurrence: US)
  Receive Date: 20180914
  Receipt Date: 20180914
  Transmission Date: 20181010
  Serious: Yes (Other)
  Sender: FDA-Public Use
  Company Number: US-ELI_LILLY_AND_COMPANY-US201809002535

PATIENT
  Sex: Male

DRUGS (2)
  1. HUMULIN R U?500 [Suspect]
     Active Substance: INSULIN HUMAN
     Dosage: 40 U, PRN (PER MEAL)
     Route: 058
     Dates: start: 20180820
  2. HUMULIN R U?500 [Suspect]
     Active Substance: INSULIN HUMAN
     Indication: DIABETES MELLITUS
     Dosage: 40 U, PRN (PER MEAL)
     Route: 058
     Dates: start: 20180820

REACTIONS (5)
  - Internal haemorrhage [Unknown]
  - Blood glucose decreased [Unknown]
  - Injection site bruising [Unknown]
  - Accidental underdose [Unknown]
  - Blood glucose increased [Unknown]
